FAERS Safety Report 23864104 (Version 1)
Quarter: 2024Q2

REPORT INFORMATION
  Report Type: Spontaneous
  Country: IT (occurrence: None)
  Receive Date: 20240516
  Receipt Date: 20240516
  Transmission Date: 20240716
  Serious: Yes (Hospitalization)
  Sender: FDA-Public Use
  Company Number: 2024A113705

PATIENT
  Age: 27 Year
  Sex: Female

DRUGS (5)
  1. QUETIAPINE FUMARATE [Suspect]
     Active Substance: QUETIAPINE FUMARATE
     Indication: Depression
     Dates: start: 2023, end: 20240408
  2. QUETIAPINE FUMARATE [Suspect]
     Active Substance: QUETIAPINE FUMARATE
     Indication: Depression
  3. BROMAZEPAM [Suspect]
     Active Substance: BROMAZEPAM
     Indication: Anxiety
     Dates: start: 2023, end: 20240408
  4. BROMAZEPAM [Suspect]
     Active Substance: BROMAZEPAM
     Indication: Anxiety
     Dates: start: 2023
  5. CIPRALEX [Suspect]
     Active Substance: ESCITALOPRAM OXALATE

REACTIONS (1)
  - Feeling jittery [Recovering/Resolving]

NARRATIVE: CASE EVENT DATE: 20240408
